FAERS Safety Report 17169737 (Version 1)
Quarter: 2019Q4

REPORT INFORMATION
  Report Type: Spontaneous
  Country: SE (occurrence: SE)
  Receive Date: 20191218
  Receipt Date: 20191218
  Transmission Date: 20200122
  Serious: Yes (Hospitalization)
  Sender: FDA-Public Use
  Company Number: SE-ASTRAZENECA-2019SF78903

PATIENT
  Sex: Female

DRUGS (4)
  1. OXASCAND [Suspect]
     Active Substance: OXAZEPAM
     Dosage: 150.0MG UNKNOWN
     Route: 048
     Dates: start: 20180421, end: 20180421
  2. PROPAVAN [Suspect]
     Active Substance: PROPIOMAZINE
     Dosage: 500.0MG UNKNOWN
     Route: 048
     Dates: start: 20180421, end: 20180421
  3. QUETIAPINE. [Suspect]
     Active Substance: QUETIAPINE
     Dosage: 250.0MG UNKNOWN
     Route: 048
     Dates: start: 20180421, end: 20180421
  4. IMOVANE [Suspect]
     Active Substance: ZOPICLONE
     Dosage: ^2 IMOVANE^
     Route: 048
     Dates: start: 20180421, end: 20180421

REACTIONS (3)
  - Intentional self-injury [Unknown]
  - Intentional overdose [Unknown]
  - Depressed level of consciousness [Unknown]

NARRATIVE: CASE EVENT DATE: 20180421
